FAERS Safety Report 20694875 (Version 1)
Quarter: 2022Q2

REPORT INFORMATION
  Report Type: Spontaneous
  Country: FR (occurrence: FR)
  Receive Date: 20220411
  Receipt Date: 20220411
  Transmission Date: 20220721
  Serious: Yes (Other)
  Sender: FDA-Public Use
  Company Number: None

PATIENT
  Age: 49 Year
  Sex: Male

DRUGS (10)
  1. TRILEPTAL [Suspect]
     Active Substance: OXCARBAZEPINE
     Indication: Psychotic disorder
     Dosage: 2 DOSAGE FORM, QD
     Route: 048
     Dates: start: 20210212
  2. MELATONIN [Suspect]
     Active Substance: MELATONIN
     Indication: Psychotic disorder
     Dosage: 2 DOSAGE FORM, QD
     Route: 048
     Dates: start: 20210618
  3. TRIMEPRAZINE [Suspect]
     Active Substance: TRIMEPRAZINE
     Indication: Psychotic disorder
     Dosage: 25 DRP, QD
     Route: 048
     Dates: start: 20210709, end: 20220121
  4. LOXAPINE [Suspect]
     Active Substance: LOXAPINE
     Indication: Psychotic disorder
     Dosage: 40 DRP, QD
     Route: 048
     Dates: start: 20210922, end: 20220121
  5. BISOPROLOL FUMARATE [Concomitant]
     Active Substance: BISOPROLOL FUMARATE
     Indication: Product used for unknown indication
     Dosage: UNK
     Route: 065
  6. RAMIPRIL [Concomitant]
     Active Substance: RAMIPRIL
     Indication: Product used for unknown indication
     Dosage: UNK
     Route: 065
  7. ASPIRIN DL-LYSINE [Concomitant]
     Active Substance: ASPIRIN DL-LYSINE
     Indication: Product used for unknown indication
     Dosage: UNK
     Route: 065
  8. VALIUM [Concomitant]
     Active Substance: DIAZEPAM
     Indication: Product used for unknown indication
     Dosage: UNK
     Route: 065
  9. LORMETAZEPAM [Concomitant]
     Active Substance: LORMETAZEPAM
     Indication: Product used for unknown indication
     Dosage: UNK
     Route: 065
  10. CLOBAZAM [Concomitant]
     Active Substance: CLOBAZAM
     Indication: Product used for unknown indication
     Dosage: UNK
     Route: 065

REACTIONS (1)
  - Constipation [Not Recovered/Not Resolved]

NARRATIVE: CASE EVENT DATE: 20211123
